FAERS Safety Report 11538734 (Version 1)
Quarter: 2015Q3

REPORT INFORMATION
  Report Type: Spontaneous
  Country: US (occurrence: US)
  Receive Date: 20150923
  Receipt Date: 20150923
  Transmission Date: 20151125
  Serious: Yes (Hospitalization)
  Sender: FDA-Public Use
  Company Number: US-PFIZER INC-2015307101

PATIENT
  Age: 66 Year
  Sex: Female
  Weight: 61 kg

DRUGS (29)
  1. ALPRAZOLAM. [Concomitant]
     Active Substance: ALPRAZOLAM
     Indication: ANXIETY
     Dosage: 0.25 MG, 4X/DAY, AS NEEDED
     Route: 048
  2. CITALOPRAM [Concomitant]
     Active Substance: CITALOPRAM HYDROBROMIDE
     Dosage: 20 MG, DAILY
     Route: 048
  3. DONEPEZIL. [Concomitant]
     Active Substance: DONEPEZIL
     Indication: MEMORY IMPAIRMENT
     Dosage: 10 MG, AT BEDTIME
     Route: 048
  4. HUMALOG [Concomitant]
     Active Substance: INSULIN LISPRO
     Indication: BLOOD GLUCOSE INCREASED
  5. TIZANIDINE. [Concomitant]
     Active Substance: TIZANIDINE
     Indication: MUSCLE SPASMS
     Dosage: 4 MG, 3 TIMES A DAY AS NEEDED
     Route: 048
  6. ZOLPIDEM [Concomitant]
     Active Substance: ZOLPIDEM\ZOLPIDEM TARTRATE
     Indication: INSOMNIA
     Dosage: 5 MG, AT BEDTIME
     Route: 048
  7. NITROGLYCERIN PATCHES [Concomitant]
     Active Substance: NITROGLYCERIN
     Indication: CHEST PAIN
     Dosage: 0.4 MG, DAILY
     Route: 062
  8. LYRICA [Suspect]
     Active Substance: PREGABALIN
     Indication: PAIN IN EXTREMITY
  9. BIOTENE [Concomitant]
     Indication: SKIN DISORDER
  10. NEXIUM [Concomitant]
     Active Substance: ESOMEPRAZOLE MAGNESIUM
     Dosage: 40 MG, DAILY
     Route: 048
  11. ESTRADIOL. [Concomitant]
     Active Substance: ESTRADIOL
     Indication: ENDOCRINE DISORDER
     Dosage: 1 MG, DAILY
     Route: 048
  12. GRALISE [Concomitant]
     Active Substance: GABAPENTIN
     Dosage: 600 MG, AT BEDTIME
     Route: 048
  13. LYRICA [Suspect]
     Active Substance: PREGABALIN
     Indication: SPINAL CORD INJURY
     Dosage: 100 MG, 3X/DAY
     Dates: start: 2014
  14. ATORVASTATIN [Concomitant]
     Active Substance: ATORVASTATIN
     Indication: BLOOD CHOLESTEROL INCREASED
     Dosage: 20 MG, DAILY
     Route: 048
  15. BIOTENE [Concomitant]
     Indication: NAIL DISORDER
  16. DILTIAZEM [Concomitant]
     Active Substance: DILTIAZEM
     Indication: CARDIAC DISORDER
     Dosage: 60 MG, EVERY 12 HRS TWICE DAILY
     Route: 048
  17. NIACIN. [Concomitant]
     Active Substance: NIACIN
     Dosage: AT BEDTIME
  18. SPIRONOLACTONE. [Concomitant]
     Active Substance: SPIRONOLACTONE
     Dosage: 50 MG, 2X/DAY
     Route: 048
  19. DULOXETINE. [Concomitant]
     Active Substance: DULOXETINE
     Dosage: 60 MG, AT BED TIME
     Route: 048
  20. HYDROMORPHONE [Concomitant]
     Active Substance: HYDROMORPHONE
     Indication: PAIN
  21. LEVEMIR [Concomitant]
     Active Substance: INSULIN DETEMIR
     Indication: DIABETES MELLITUS
     Dosage: 24UNITS AT BEDTIME
  22. VIIBRYD [Concomitant]
     Active Substance: VILAZODONE HYDROCHLORIDE
     Indication: ANXIETY
     Dosage: 40 MG, AT BEDTIME
     Route: 048
  23. CLOPIDOGREL [Concomitant]
     Active Substance: CLOPIDOGREL BISULFATE
     Indication: THROMBOSIS
     Dosage: 75 MG, AT BEDTIME
     Route: 048
  24. LYRICA [Suspect]
     Active Substance: PREGABALIN
     Indication: BURNING SENSATION
  25. VIIBRYD [Concomitant]
     Active Substance: VILAZODONE HYDROCHLORIDE
     Indication: DEPRESSION
  26. LYRICA [Suspect]
     Active Substance: PREGABALIN
     Indication: NEURALGIA
  27. LYRICA [Suspect]
     Active Substance: PREGABALIN
     Indication: DIABETIC NEUROPATHY
  28. BIOTENE [Concomitant]
     Indication: HAIR DISORDER
     Dosage: 10000 ?G, DAILY
     Route: 048
  29. HYDROMORPHONE [Concomitant]
     Active Substance: HYDROMORPHONE
     Indication: BACK PAIN
     Dosage: 8 MG, 5 TIMES A DAY AS NEEDED

REACTIONS (4)
  - Cardiac disorder [Recovering/Resolving]
  - Depression [Unknown]
  - Osteoporosis [Not Recovered/Not Resolved]
  - Insomnia [Unknown]

NARRATIVE: CASE EVENT DATE: 20150826
